FAERS Safety Report 14382862 (Version 2)
Quarter: 2018Q1

REPORT INFORMATION
  Report Type: Spontaneous
  Country: US (occurrence: US)
  Receive Date: 20180113
  Receipt Date: 20180227
  Transmission Date: 20180509
  Serious: Yes (Hospitalization, Other)
  Sender: FDA-Public Use
  Company Number: US-ASTRAZENECA-2018SE02203

PATIENT
  Age: 69 Year
  Sex: Male
  Weight: 97.5 kg

DRUGS (9)
  1. DYMISTA [Concomitant]
     Active Substance: AZELASTINE HYDROCHLORIDE\FLUTICASONE PROPIONATE
  2. TRAMADOL. [Concomitant]
     Active Substance: TRAMADOL
     Indication: PAIN
     Dosage: AS REQUIRED
  3. TUDORZA PRESSAIR [Suspect]
     Active Substance: ACLIDINIUM BROMIDE
     Indication: EMPHYSEMA
     Route: 055
     Dates: start: 2012
  4. PROAIR VIA NEBULIZER [Concomitant]
     Route: 055
     Dates: start: 1992
  5. ADVAIR HFA [Concomitant]
     Active Substance: FLUTICASONE PROPIONATE\SALMETEROL XINAFOATE
     Dates: start: 2010
  6. CARVEDILOL. [Concomitant]
     Active Substance: CARVEDILOL
     Indication: CARDIAC DISORDER
     Dosage: TAKES 1.5 TABS EVERY MORNING AND 1 TAB NIGHTLY.
  7. DELORISP [Concomitant]
     Indication: LUNG DISORDER
     Dosage: 325 OR 525 DAILY
     Route: 048
  8. TYLENOL [Concomitant]
     Active Substance: ACETAMINOPHEN
     Indication: PAIN
     Dosage: AS REQUIRED
  9. TUDORZA PRESSAIR [Suspect]
     Active Substance: ACLIDINIUM BROMIDE
     Indication: CHRONIC OBSTRUCTIVE PULMONARY DISEASE
     Route: 055
     Dates: start: 2012

REACTIONS (12)
  - Carbon dioxide abnormal [Unknown]
  - Lung neoplasm malignant [Unknown]
  - Dizziness [Unknown]
  - Lung infection pseudomonal [Unknown]
  - Drug dose omission [Unknown]
  - Device failure [Unknown]
  - Feeling abnormal [Unknown]
  - Oxygen saturation decreased [Unknown]
  - Product quality issue [Unknown]
  - Necrosis [Unknown]
  - Product taste abnormal [Unknown]
  - Intentional product misuse [Unknown]

NARRATIVE: CASE EVENT DATE: 2012
